FAERS Safety Report 16970069 (Version 1)
Quarter: 2019Q4

REPORT INFORMATION
  Report Type: Spontaneous
  Country: NP (occurrence: NP)
  Receive Date: 20191029
  Receipt Date: 20191029
  Transmission Date: 20200122
  Serious: Yes (Death)
  Sender: FDA-Public Use
  Company Number: NP-PFIZER INC-2019463355

PATIENT
  Age: 56 Year
  Sex: Male

DRUGS (12)
  1. COLISTIN [Suspect]
     Active Substance: COLISTIN
     Indication: PNEUMONIA
     Dosage: UNK
     Route: 055
  2. MEROPENEM. [Suspect]
     Active Substance: MEROPENEM
     Indication: ENCEPHALITIS
     Dosage: UNK
  3. MEROPENEM. [Suspect]
     Active Substance: MEROPENEM
     Indication: ACINETOBACTER INFECTION
  4. AMIKACIN. [Suspect]
     Active Substance: AMIKACIN
     Indication: ACINETOBACTER INFECTION
  5. COLISTIN [Suspect]
     Active Substance: COLISTIN
     Indication: ENCEPHALITIS
     Dosage: UNK
     Route: 042
  6. COLISTIN [Suspect]
     Active Substance: COLISTIN
     Indication: PNEUMONIA KLEBSIELLA
  7. MEROPENEM. [Suspect]
     Active Substance: MEROPENEM
     Indication: PNEUMONIA
  8. AMIKACIN. [Suspect]
     Active Substance: AMIKACIN
     Indication: ENCEPHALITIS
     Dosage: UNK
  9. MEROPENEM. [Suspect]
     Active Substance: MEROPENEM
     Indication: PNEUMONIA KLEBSIELLA
  10. AMIKACIN. [Suspect]
     Active Substance: AMIKACIN
     Indication: PNEUMONIA
  11. AMIKACIN. [Suspect]
     Active Substance: AMIKACIN
     Indication: PNEUMONIA KLEBSIELLA
  12. COLISTIN [Suspect]
     Active Substance: COLISTIN
     Indication: ACINETOBACTER INFECTION

REACTIONS (1)
  - Drug resistance [Fatal]
